FAERS Safety Report 17629323 (Version 1)
Quarter: 2020Q2

REPORT INFORMATION
  Report Type: Spontaneous
  Country: SE (occurrence: SE)
  Receive Date: 20200406
  Receipt Date: 20200406
  Transmission Date: 20200713
  Serious: Yes (Other)
  Sender: FDA-Public Use
  Company Number: SE-TEVA-2020-SE-1218698

PATIENT
  Age: 87 Year
  Sex: Female

DRUGS (11)
  1. ATACAND [Concomitant]
     Active Substance: CANDESARTAN CILEXETIL
     Dosage: 4 MILLIGRAM
     Dates: start: 20191024
  2. FURIX 10 MG/ML INJEKTIONSV?TSKA, L?SNING [Concomitant]
     Dosage: 2-4 ML IF NECESSARY , MAXIMUM 8 ML PER DAY
     Route: 042
     Dates: start: 20190220
  3. ALVEDON 500 MG FILMDRAGERAD TABLETT [Concomitant]
     Active Substance: ACETAMINOPHEN
     Dosage: 2000 MILLIGRAM
     Dates: start: 20191205
  4. ENALAPRIL [Concomitant]
     Active Substance: ENALAPRIL
     Dosage: 2.5 MLLIGRAM
  5. HALDOL 5 MG/ML INJEKTIONSV?TSKA, L?SNING [Concomitant]
     Dosage: 1 ML DAILY; 0.1-0.5 ML IF NECESSARY, MAXIMUM 1 ML PER DAY
     Route: 058
     Dates: start: 20190220
  6. MORPHINE [Concomitant]
     Active Substance: MORPHINE
     Dosage: 0,25-0,5 ML IF NECESSARY, MAXIMUM 3 ML PER DAY
     Route: 058
     Dates: start: 20190220
  7. PREDNISOLONE. [Suspect]
     Active Substance: PREDNISOLONE
     Indication: POLYMYALGIA RHEUMATICA
     Dosage: 30 MILLIGRAM
     Route: 065
     Dates: start: 20200204
  8. ROBINUL [Concomitant]
     Active Substance: GLYCOPYRROLATE
     Dosage: 1 ML IF NECESSARY , MAXIMUM 4 ML PER DAY
     Route: 058
     Dates: start: 20190220
  9. MIDAZOLAM. [Concomitant]
     Active Substance: MIDAZOLAM
     Dosage: 0,2-0,5 ML VID BEHOV
     Route: 058
     Dates: start: 20190220
  10. FOLACIN 1 MG TABLETT [Concomitant]
     Dosage: 1 MILLIGRAM
     Dates: start: 20180315
  11. BUPRENORPHINE. [Concomitant]
     Active Substance: BUPRENORPHINE
     Dates: start: 20200113

REACTIONS (1)
  - Hyperglycaemia [Unknown]

NARRATIVE: CASE EVENT DATE: 20200219
